FAERS Safety Report 6399729-8 (Version None)
Quarter: 2009Q4

REPORT INFORMATION
  Report Type: 
  Country: None (occurrence: None)
  Receive Date: 20091014
  Receipt Date: 20091005
  Transmission Date: 20100525
  Serious: Yes (Hospitalization)
  Sender: FDA-Public Use
  Company Number: NL-ROCHE-661902

PATIENT
  Age: 83 Year
  Sex: Male

DRUGS (1)
  1. CAPECITABINE [Suspect]
     Indication: PROSTATE CANCER METASTATIC
     Dosage: DOSE ESCALATED WITH STEPS OF 1/3 OF 2500 MG/M2. DOSE RECEIVED: 1500 MG 2DD
     Route: 048

REACTIONS (2)
  - COR PULMONALE [None]
  - PNEUMONIA [None]
